FAERS Safety Report 22146597 (Version 1)
Quarter: 2023Q1

REPORT INFORMATION
  Report Type: Spontaneous
  Country: FR (occurrence: FR)
  Receive Date: 20230328
  Receipt Date: 20230328
  Transmission Date: 20230418
  Serious: Yes (Other)
  Sender: FDA-Public Use
  Company Number: None

PATIENT
  Age: 72 Year
  Sex: Female
  Weight: 68 kg

DRUGS (2)
  1. GEMCITABINE HYDROCHLORIDE [Suspect]
     Active Substance: GEMCITABINE HYDROCHLORIDE
     Indication: Lung adenocarcinoma
     Dosage: 1250 MG/M2, CYCLIC
     Route: 042
     Dates: start: 20230105
  2. LENOGRASTIM [Suspect]
     Active Substance: LENOGRASTIM
     Indication: Colony stimulating factor therapy
     Dosage: 1 DF, 1X/DAY
     Route: 058

REACTIONS (1)
  - Brachiocephalic vein thrombosis [Not Recovered/Not Resolved]

NARRATIVE: CASE EVENT DATE: 20230224
